FAERS Safety Report 9661271 (Version 1)
Quarter: 2013Q4

REPORT INFORMATION
  Report Type: Spontaneous
  Country: US (occurrence: None)
  Receive Date: 20131030
  Receipt Date: 20131030
  Transmission Date: 20140711
  Serious: No
  Sender: FDA-Public Use
  Company Number: 2013250858

PATIENT
  Age: 80 Year
  Sex: Female

DRUGS (1)
  1. FRAGMIN [Suspect]
     Route: 058
     Dates: start: 2013, end: 2013

REACTIONS (1)
  - Oedema peripheral [None]
